FAERS Safety Report 5279183-X (Version None)
Quarter: 2007Q1

REPORT INFORMATION
  Report Type: 
  Country: None (occurrence: None)
  Receive Date: 20070328
  Receipt Date: 20070316
  Transmission Date: 20070707
  Serious: Yes (Disabling)
  Sender: FDA-Public Use
  Company Number: DE-GILEAD-2007-0011293

PATIENT
  Age: 57 Year
  Sex: Male
  Weight: 85 kg

DRUGS (12)
  1. VIREAD [Suspect]
     Indication: HIV INFECTION CDC CATEGORY B3
     Route: 048
     Dates: start: 20041201
  2. VIREAD [Suspect]
     Dates: start: 20030101, end: 20041201
  3. NORVIR [Concomitant]
     Dates: start: 20041201
  4. NORVIR [Concomitant]
     Dates: start: 20011203, end: 20021211
  5. TELZIR [Concomitant]
     Dates: start: 20041201
  6. VIDEX [Concomitant]
     Dates: start: 20041201
  7. VIDEX [Concomitant]
     Dates: start: 20030101, end: 20041201
  8. VIDEX [Concomitant]
     Dates: start: 20000417, end: 20011203
  9. VIDEX [Concomitant]
     Dates: start: 19990609, end: 20000417
  10. VIDEX [Concomitant]
     Dates: start: 19980501, end: 19990601
  11. KALETRA [Concomitant]
     Dates: start: 20030101, end: 20041201
  12. VENLAFAXINE HCL [Concomitant]
     Dates: start: 20060601, end: 20070201

REACTIONS (3)
  - BRADYPHRENIA [None]
  - DEPRESSED MOOD [None]
  - DISTURBANCE IN ATTENTION [None]
